FAERS Safety Report 17131235 (Version 2)
Quarter: 2019Q4

REPORT INFORMATION
  Report Type: Report from Study
  Country: US (occurrence: US)
  Receive Date: 20191209
  Receipt Date: 20191216
  Transmission Date: 20200122
  Serious: Yes (Hospitalization)
  Sender: FDA-Public Use
  Company Number: US-EXELIXIS-CABO-19024502

PATIENT
  Age: 74 Year
  Sex: Male

DRUGS (3)
  1. CABOMETYX [Suspect]
     Active Substance: CABOZANTINIB S-MALATE
     Indication: RENAL CANCER
     Dosage: UNK
  2. HYDROCHLOROTHIAZIDE. [Concomitant]
     Active Substance: HYDROCHLOROTHIAZIDE
  3. CABOMETYX [Suspect]
     Active Substance: CABOZANTINIB S-MALATE
     Dosage: 60 MG, QD
     Route: 048
     Dates: start: 20191017

REACTIONS (6)
  - Blood pressure increased [Unknown]
  - Dysphagia [Unknown]
  - Taste disorder [Unknown]
  - Fatigue [Unknown]
  - Muscle spasms [Unknown]
  - Hiccups [Unknown]

NARRATIVE: CASE EVENT DATE: 201910
